FAERS Safety Report 21100548 (Version 2)
Quarter: 2022Q3

REPORT INFORMATION
  Report Type: Spontaneous
  Country: AU (occurrence: AU)
  Receive Date: 20220719
  Receipt Date: 20220725
  Transmission Date: 20221027
  Serious: Yes (Hospitalization, Other)
  Sender: FDA-Public Use
  Company Number: AU-DENTSPLY-2022SCDP000195

PATIENT
  Age: 48 Year
  Sex: Male

DRUGS (2)
  1. LIDOCAINE [Suspect]
     Active Substance: LIDOCAINE
     Indication: Analgesic therapy
     Dosage: MORE THAN 300 G OF 10.56 % LIDOCAINE CREAM
     Route: 061
  2. DROPERIDOL [Concomitant]
     Active Substance: DROPERIDOL
     Indication: Sedation
     Dosage: 10 MILLIGRAM
     Route: 030

REACTIONS (17)
  - Disorientation [None]
  - Cardiotoxicity [Recovered/Resolved]
  - Ataxia [None]
  - Dysarthria [None]
  - Agitation [None]
  - Mental disorder [Recovering/Resolving]
  - Aphasia [None]
  - Hypertonia [Recovered/Resolved]
  - Neurotoxicity [None]
  - Chills [Recovering/Resolving]
  - Electrocardiogram QRS complex prolonged [Recovered/Resolved]
  - Hyperreflexia [None]
  - Prescription drug used without a prescription [Unknown]
  - Drug level increased [None]
  - Muscle twitching [None]
  - Overdose [None]
  - Feeling drunk [Unknown]
